FAERS Safety Report 25019785 (Version 3)
Quarter: 2025Q1

REPORT INFORMATION
  Report Type: Spontaneous
  Country: US (occurrence: US)
  Receive Date: 20250227
  Receipt Date: 20250330
  Transmission Date: 20250408
  Serious: Yes (Hospitalization, Other)
  Sender: SANOFI AVENTIS
  Company Number: US-SA-2025SA059238

PATIENT
  Age: 73 Year
  Sex: Male
  Weight: 85 kg

DRUGS (3)
  1. DUPIXENT [Suspect]
     Active Substance: DUPILUMAB
     Indication: Dermatitis atopic
     Dosage: 300 MG, QOW
     Route: 058
     Dates: start: 20250114
  2. PIMECROLIMUS [Concomitant]
     Active Substance: PIMECROLIMUS
  3. HYDROCHLOROTHIAZIDE [Concomitant]
     Active Substance: HYDROCHLOROTHIAZIDE

REACTIONS (6)
  - Atrial fibrillation [Recovering/Resolving]
  - Myocardial infarction [Recovering/Resolving]
  - Pulmonary embolism [Recovering/Resolving]
  - Chest pain [Unknown]
  - Arthralgia [Unknown]
  - Cardiac ventricular disorder [Unknown]

NARRATIVE: CASE EVENT DATE: 20250101
